FAERS Safety Report 8002263 (Version 5)
Quarter: 2016Q4

REPORT INFORMATION
  Report Type: Report from Study
  Country: US (occurrence: US)
  Receive Date: 20110622
  Receipt Date: 20161004
  Transmission Date: 20170207
  Serious: Yes (Death, Life-Threatening, Other)
  Sender: FDA-Public Use
  Company Number: US-ROCHE-783345

PATIENT
  Age: 55 Year
  Sex: Female
  Weight: 158.3 kg

DRUGS (4)
  1. BEVACIZUMAB [Suspect]
     Active Substance: BEVACIZUMAB
     Indication: ENDOMETRIAL CANCER
     Dosage: 30-90 MIN ON DAY 1 FOR CYCLES 1-6 (STARTING WITH CYCLE 2 FOR THOSE PTS ENETRING POST SURGERY), 15 MG
     Route: 042
  2. PACLITAXEL. [Suspect]
     Active Substance: PACLITAXEL
     Indication: ENDOMETRIAL CANCER
     Dosage: OVER 3 HRS ON DAY 1 FOR CYCLES 1-6 LAST DOSE PRIOR TO SAE: 30/DEC/2010
     Route: 042
     Dates: start: 20100917
  3. CARBOPLATIN. [Suspect]
     Active Substance: CARBOPLATIN
     Indication: ENDOMETRIAL CANCER
     Dosage: AUC: 6, OVER 30 MIN ON DAY 1 FOR CYCLES 1-6. LAST DOSE PRIOR TO SAE: 30/DEC/2010
     Route: 042
     Dates: start: 20100917
  4. BEVACIZUMAB [Suspect]
     Active Substance: BEVACIZUMAB
     Dosage: RECEIVED ON 10/DEC/2010, 30/DEC/2010
     Route: 042

REACTIONS (6)
  - Neutrophil count decreased [Unknown]
  - Anaemia [Unknown]
  - Acidosis [Unknown]
  - Pulmonary embolism [Fatal]
  - Fibrin D dimer increased [Unknown]
  - Hyperglycaemia [Unknown]

NARRATIVE: CASE EVENT DATE: 20110116
